FAERS Safety Report 6200907-9 (Version None)
Quarter: 2009Q2

REPORT INFORMATION
  Report Type: 
  Country: None (occurrence: None)
  Receive Date: 20090523
  Receipt Date: 20070711
  Transmission Date: 20091009
  Serious: No
  Sender: FDA-Public Use
  Company Number: US-ALEXION-A200700028

PATIENT

DRUGS (1)
  1. ECULIZUMAB [Suspect]
     Dosage: UNK, SINGLE
     Dates: start: 20070701, end: 20070701

REACTIONS (1)
  - PLATELET COUNT DECREASED [None]
